FAERS Safety Report 24421944 (Version 1)
Quarter: 2024Q4

REPORT INFORMATION
  Report Type: Spontaneous
  Country: FR (occurrence: FR)
  Receive Date: 20241010
  Receipt Date: 20241010
  Transmission Date: 20250114
  Serious: Yes (Hospitalization, Other)
  Sender: CELLTRION
  Company Number: None

PATIENT

DRUGS (3)
  1. RITUXIMAB [Suspect]
     Active Substance: RITUXIMAB
     Indication: Rheumatoid arthritis
     Dosage: UNK
  2. RITUXIMAB [Suspect]
     Active Substance: RITUXIMAB
     Dosage: 2 G, EVERY 6 MONTH (DOSAGE TEXT: 1G +1G)
     Route: 042
     Dates: start: 202001, end: 2021
  3. RITUXIMAB [Suspect]
     Active Substance: RITUXIMAB
     Dosage: 1 G, EVERY 6 MONTH
     Route: 042
     Dates: start: 2021, end: 20230106

REACTIONS (1)
  - Agranulocytosis [Recovered/Resolved]

NARRATIVE: CASE EVENT DATE: 20230612
